FAERS Safety Report 13254850 (Version 3)
Quarter: 2017Q2

REPORT INFORMATION
  Report Type: Spontaneous
  Country: US (occurrence: US)
  Receive Date: 20170221
  Receipt Date: 20170427
  Transmission Date: 20170830
  Serious: No
  Sender: FDA-Public Use
  Company Number: US-PFIZER INC-2017068789

PATIENT
  Age: 74 Year
  Sex: Female
  Weight: 52 kg

DRUGS (4)
  1. THERALITH [Concomitant]
     Indication: NEPHROLITHIASIS
     Dosage: 4 DF, 1X/DAY (EACH MORNING)
     Dates: start: 201611
  2. SUTENT [Suspect]
     Active Substance: SUNITINIB MALATE
     Indication: LYMPHOMA
     Dosage: 50 MG, CYCLIC (THREE WEEKS ON AND ONE WEEK OFF)
     Route: 048
     Dates: start: 20161208
  3. SUTENT [Suspect]
     Active Substance: SUNITINIB MALATE
     Dosage: 25 MG, CYCLIC (TWO WEEKS ON, ONE WEEK OFF, TWO WEEKS ON)
  4. BISOPROLOL HCT [Concomitant]
     Active Substance: BISOPROLOL FUMARATE\HYDROCHLOROTHIAZIDE
     Indication: BLOOD PRESSURE ABNORMAL
     Dosage: UNK, 1X/DAY (TAKING PRODUCT FOR ABOUT 6 YEARS)

REACTIONS (1)
  - Rash [Not Recovered/Not Resolved]

NARRATIVE: CASE EVENT DATE: 20161221
